FAERS Safety Report 5437945-X (Version None)
Quarter: 2007Q3

REPORT INFORMATION
  Report Type: 
  Country: None (occurrence: None)
  Receive Date: 20070831
  Receipt Date: 20070629
  Transmission Date: 20080115
  Serious: No
  Sender: FDA-Public Use
  Company Number: A0660580A

PATIENT
  Age: 67 Year
  Sex: Female

DRUGS (3)
  1. ALLI [Suspect]
  2. WARFARIN SODIUM [Concomitant]
  3. UNKNOWN MEDICATION [Concomitant]

REACTIONS (2)
  - FLATULENCE [None]
  - STEATORRHOEA [None]
